FAERS Safety Report 4769565-4 (Version None)
Quarter: 2005Q3

REPORT INFORMATION
  Report Type: 
  Country: None (occurrence: None)
  Receive Date: 20050915
  Receipt Date: 20050912
  Transmission Date: 20060218
  Serious: Yes (Death)
  Sender: FDA-Public Use
  Company Number: US-BOEHRINGER INGELHEIM PHARMACEUTICALS, INC.-2005-BP-16167BP

PATIENT
  Sex: Female
  Weight: 31.75 kg

DRUGS (1)
  1. APTIVUS/RITONAVIR [Suspect]
     Indication: HIV INFECTION
     Dosage: COMBINATION
     Route: 048

REACTIONS (2)
  - DEATH [None]
  - HIV INFECTION [None]
